FAERS Safety Report 4820279-1 (Version None)
Quarter: 2005Q4

REPORT INFORMATION
  Report Type: 
  Country: None (occurrence: None)
  Receive Date: 20051104
  Receipt Date: 20050906
  Transmission Date: 20060501
  Serious: Yes (Hospitalization)
  Sender: FDA-Public Use
  Company Number: NL-BOEHRINGER INGELHEIM PHARMACEUTICALS, INC.-2005-NL-00240NL

PATIENT
  Sex: Female
  Weight: 79 kg

DRUGS (11)
  1. SPIRIVA [Suspect]
     Indication: CHRONIC OBSTRUCTIVE PULMONARY DISEASE
     Route: 055
  2. SPIRIVA [Suspect]
     Route: 055
     Dates: start: 20050901, end: 20050906
  3. PULMICORT [Concomitant]
     Indication: CHRONIC OBSTRUCTIVE PULMONARY DISEASE
     Route: 055
  4. SEREVENT [Concomitant]
     Indication: CHRONIC OBSTRUCTIVE PULMONARY DISEASE
     Route: 055
  5. COVERSYL [Concomitant]
     Indication: CARDIAC DISORDER
     Route: 048
  6. LANOXIN [Concomitant]
     Indication: CARDIAC DISORDER
     Route: 048
  7. MONOCEDOCARD [Concomitant]
     Indication: CARDIAC DISORDER
     Route: 048
  8. ACENOCOUMAROL [Concomitant]
     Indication: CARDIAC DISORDER
     Route: 048
  9. METFORMINE [Concomitant]
     Indication: DIABETES MELLITUS
     Route: 048
  10. BUMETANIDE [Concomitant]
     Indication: CARDIAC DISORDER
     Route: 048
  11. SIMVASTATIN [Concomitant]
     Indication: BLOOD CHOLESTEROL
     Route: 048

REACTIONS (5)
  - COUGH [None]
  - FATIGUE [None]
  - PHARYNGOLARYNGEAL PAIN [None]
  - VOMITING [None]
  - WEIGHT DECREASED [None]
